FAERS Safety Report 21263077 (Version 1)
Quarter: 2022Q3

REPORT INFORMATION
  Report Type: Spontaneous
  Country: US (occurrence: None)
  Receive Date: 20220827
  Receipt Date: 20220827
  Transmission Date: 20221027
  Serious: Yes (Other)
  Sender: FDA-Public Use
  Company Number: None

PATIENT
  Age: 76 Year
  Sex: Female
  Weight: 60.75 kg

DRUGS (6)
  1. PAXLOVID [Suspect]
     Active Substance: NIRMATRELVIR\RITONAVIR
     Indication: COVID-19
     Dosage: FREQUENCY : TWICE A DAY;?
     Route: 048
     Dates: start: 20220825, end: 20220827
  2. VITAMIN D [Concomitant]
     Active Substance: VITAMIN D NOS
     Dates: start: 20170801
  3. SELENIUM [Concomitant]
     Active Substance: SELENIUM
     Dates: start: 20170801
  4. ZINC [Concomitant]
     Active Substance: ZINC
     Dates: start: 20170801
  5. MAGNESIUM [Concomitant]
     Active Substance: MAGNESIUM
     Dates: start: 20170801
  6. KRILL OIL [Concomitant]
     Active Substance: DIETARY SUPPLEMENT\KRILL OIL
     Dates: start: 20170801

REACTIONS (6)
  - Dysgeusia [None]
  - Dysgeusia [None]
  - Diarrhoea [None]
  - Cough [None]
  - Dyspnoea [None]
  - Regurgitation [None]

NARRATIVE: CASE EVENT DATE: 20220825
